FAERS Safety Report 4485735-7 (Version None)
Quarter: 2004Q4

REPORT INFORMATION
  Report Type: 
  Country: None (occurrence: None)
  Receive Date: 20041026
  Receipt Date: 20041014
  Transmission Date: 20050328
  Serious: Yes (Hospitalization)
  Sender: FDA-Public Use
  Company Number: US-JNJFOC-20040403753

PATIENT
  Sex: Female

DRUGS (7)
  1. DURAGESIC [Suspect]
     Route: 062
  2. DURAGESIC [Suspect]
     Route: 062
  3. DURAGESIC [Suspect]
     Route: 062
  4. DURAGESIC [Suspect]
     Route: 062
  5. VICODIN [Concomitant]
     Indication: BACK PAIN
     Route: 049
  6. VICODIN [Concomitant]
     Indication: NECK PAIN
     Route: 049
  7. ATIVAN [Concomitant]
     Indication: ANXIETY
     Route: 049

REACTIONS (7)
  - CHOLELITHIASIS [None]
  - DIZZINESS [None]
  - NAUSEA [None]
  - PHARMACEUTICAL PRODUCT COMPLAINT [None]
  - POLYP [None]
  - THERAPEUTIC RESPONSE DECREASED [None]
  - VOMITING [None]
